FAERS Safety Report 8358806-2 (Version None)
Quarter: 2012Q2

REPORT INFORMATION
  Report Type: 
  Country: None (occurrence: None)
  Receive Date: 20120514
  Receipt Date: 20120423
  Transmission Date: 20120825
  Serious: Yes (Death)
  Sender: FDA-Public Use
  Company Number: PHHY2010KR29197

PATIENT
  Sex: Female
  Weight: 50 kg

DRUGS (2)
  1. EXJADE [Suspect]
     Dosage: 20 MG/KG, UNK
     Route: 048
     Dates: start: 20091007, end: 20100323
  2. EXJADE [Suspect]
     Indication: MYELODYSPLASTIC SYNDROME
     Dosage: 20 MG/KG, UNK
     Route: 048
     Dates: start: 20090917, end: 20091005

REACTIONS (2)
  - RASH [None]
  - DEATH [None]
